FAERS Safety Report 24767707 (Version 1)
Quarter: 2024Q4

REPORT INFORMATION
  Report Type: Spontaneous
  Country: CA (occurrence: CA)
  Receive Date: 20241223
  Receipt Date: 20241223
  Transmission Date: 20250114
  Serious: Yes (Other)
  Sender: ROCHE
  Company Number: CA-ROCHE-10000162508

PATIENT
  Age: 73 Year
  Sex: Male

DRUGS (5)
  1. GAZYVA [Suspect]
     Active Substance: OBINUTUZUMAB
     Indication: Product used for unknown indication
     Route: 042
  2. HYDROCORTISONE [Concomitant]
     Active Substance: HYDROCORTISONE
     Route: 061
  3. MEPERIDINE [Concomitant]
     Active Substance: MEPERIDINE
     Route: 030
  4. METHYLPREDNISOLONE [Concomitant]
     Active Substance: METHYLPREDNISOLONE
  5. BENADRYL [Concomitant]
     Active Substance: DIPHENHYDRAMINE HYDROCHLORIDE

REACTIONS (5)
  - Blood pressure decreased [Recovered/Resolved]
  - Chills [Recovered/Resolved]
  - Dysphonia [Recovered/Resolved]
  - Feeling hot [Recovered/Resolved]
  - Throat tightness [Recovered/Resolved]
